FAERS Safety Report 9486107 (Version 2)
Quarter: 2013Q3

REPORT INFORMATION
  Report Type: Spontaneous
  Country: US (occurrence: None)
  Receive Date: 20130826
  Receipt Date: 20130920
  Transmission Date: 20140515
  Serious: Yes (Life-Threatening, Hospitalization, Other)
  Sender: FDA-Public Use
  Company Number: ABR_01081_2013

PATIENT
  Sex: Female
  Weight: 108.86 kg

DRUGS (5)
  1. ERYTHROMYCIN [Suspect]
     Indication: PRODUCT USED FOR UNKNOWN INDICATION
     Dates: start: 20110810
  2. XANAX (NOT SPECIFIED) [Suspect]
     Indication: ANXIETY
  3. LEMONADE [Suspect]
     Indication: PRODUCT USED FOR UNKNOWN INDICATION
     Dosage: (DF)
  4. AMITRIPTYLINE WITB PERPHENAZINE (UNKNOWN) [Concomitant]
  5. FENTANYL [Suspect]
     Indication: PAIN
     Dosage: 1X/ 3 DAYS, [PATCH]

REACTIONS (7)
  - Renal failure acute [None]
  - Nervous system disorder [None]
  - Tachycardia [None]
  - Respiratory arrest [None]
  - Overdose [None]
  - Drug interaction [None]
  - Enzyme abnormality [None]
